FAERS Safety Report 17567851 (Version 1)
Quarter: 2020Q1

REPORT INFORMATION
  Report Type: Spontaneous
  Country: US (occurrence: US)
  Receive Date: 20200320
  Receipt Date: 20200320
  Transmission Date: 20200409
  Serious: No
  Sender: FDA-Public Use
  Company Number: US-009507513-2003USA006860

PATIENT
  Age: 21 Year
  Sex: Female

DRUGS (1)
  1. NEXPLANON [Suspect]
     Active Substance: ETONOGESTREL
     Indication: CONTRACEPTION
     Dosage: 68 MILLIGRAM, DAILY (QD)
     Route: 059
     Dates: start: 20200120, end: 2020

REACTIONS (2)
  - Inappropriate schedule of product administration [Unknown]
  - Implant site pain [Unknown]

NARRATIVE: CASE EVENT DATE: 2020
